FAERS Safety Report 15775179 (Version 2)
Quarter: 2019Q1

REPORT INFORMATION
  Report Type: Report from Study
  Country: DE (occurrence: DE)
  Receive Date: 20181231
  Receipt Date: 20190110
  Transmission Date: 20190417
  Serious: Yes (Life-Threatening, Hospitalization, Other)
  Sender: FDA-Public Use
  Company Number: DE-BAXTER-2018BAX031078

PATIENT
  Age: 94 Year
  Sex: Male
  Weight: 69 kg

DRUGS (15)
  1. DEKRISTOL [Concomitant]
     Active Substance: CHOLECALCIFEROL
     Indication: VITAMIN D DEFICIENCY
     Dosage: UNK
     Route: 048
     Dates: start: 20181015
  2. AMPHO MORONAL [Concomitant]
     Active Substance: AMPHOTERICIN B
     Indication: PROPHYLAXIS
     Dosage: UNK
     Route: 048
     Dates: start: 20181024
  3. COTRIM FORTE [Concomitant]
     Active Substance: SULFAMETHOXAZOLE\TRIMETHOPRIM
     Indication: PROPHYLAXIS
     Dosage: 960 MG, UNK
     Route: 048
     Dates: start: 20181024
  4. VINCRISTINE [Suspect]
     Active Substance: VINCRISTINE
     Indication: DIFFUSE LARGE B-CELL LYMPHOMA
     Dosage: 1 MG, (INFUSION RATE 0.5 ML/MIN FROM 10:15 TO 10:17)
     Route: 041
     Dates: start: 20181024, end: 20181024
  5. APIXABAN [Concomitant]
     Active Substance: APIXABAN
     Indication: ARRHYTHMIA
     Dosage: UNK
     Route: 048
  6. RIXIMYO [Suspect]
     Active Substance: RITUXIMAB
     Indication: DIFFUSE LARGE B-CELL LYMPHOMA
     Dosage: 670 MG, (INFUSION RATE 2.8 ML/MIN FROM 09:30 TO 13:30)
     Route: 041
     Dates: start: 20181030
  7. METOPROLOL. [Concomitant]
     Active Substance: METOPROLOL
     Indication: HYPERTENSION
     Dosage: 23.75 MG, UNK
     Route: 048
  8. VALSARTAN. [Concomitant]
     Active Substance: VALSARTAN
     Indication: HYPERTENSION
     Dosage: 80 MG, UNK
     Route: 048
  9. NEULASTA [Concomitant]
     Active Substance: PEGFILGRASTIM
     Indication: PRODUCT USED FOR UNKNOWN INDICATION
     Dosage: 6 MG, UNK
     Route: 058
     Dates: start: 20181104
  10. DOXORUBICIN [Suspect]
     Active Substance: DOXORUBICIN
     Indication: DIFFUSE LARGE B-CELL LYMPHOMA
     Dosage: 45 MG, (INFUSION RATE 5.0 ML/MIN FROM 09:35 TO 09:55)
     Route: 041
     Dates: start: 20181031, end: 20181031
  11. PREDNISONE. [Suspect]
     Active Substance: PREDNISONE
     Indication: DIFFUSE LARGE B-CELL LYMPHOMA
     Dosage: 100 MG, UNK
     Route: 048
     Dates: start: 20181024, end: 20181028
  12. LERCANIDIPINE [Concomitant]
     Active Substance: LERCANIDIPINE
     Indication: HYPERTENSION
     Dosage: 20 MG, UNK
     Route: 048
  13. TORASEMID [Concomitant]
     Active Substance: TORSEMIDE
     Indication: CARDIAC FAILURE
     Dosage: 5 MG, UNK
     Route: 048
  14. ENDOXAN 1G [Suspect]
     Active Substance: CYCLOPHOSPHAMIDE
     Indication: DIFFUSE LARGE B-CELL LYMPHOMA
     Dosage: 716 MG, (INFUSION RATE 4.0 ML/MIN FROM 10:10 TO 12:15)
     Route: 041
     Dates: start: 20181031, end: 20181031
  15. FOLSAEURE [Concomitant]
     Active Substance: FOLIC ACID
     Indication: PROPHYLAXIS
     Dosage: 5 MG, UNK
     Route: 048
     Dates: start: 20181024

REACTIONS (7)
  - Pancytopenia [Unknown]
  - Body temperature increased [Recovered/Resolved]
  - Dysphagia [Recovered/Resolved]
  - Platelet count decreased [Not Recovered/Not Resolved]
  - White blood cell count decreased [Not Recovered/Not Resolved]
  - Anaemia [Not Recovered/Not Resolved]
  - Oesophageal candidiasis [Not Recovered/Not Resolved]

NARRATIVE: CASE EVENT DATE: 20181108
